FAERS Safety Report 16353247 (Version 2)
Quarter: 2019Q2

REPORT INFORMATION
  Report Type: Report from Study
  Country: US (occurrence: US)
  Receive Date: 20190524
  Receipt Date: 20190626
  Transmission Date: 20190711
  Serious: Yes (Hospitalization)
  Sender: FDA-Public Use
  Company Number: US-TAIHO ONCOLOGY  INC-EU-2019-01697

PATIENT
  Age: 79 Year
  Sex: Male
  Weight: 58.57 kg

DRUGS (13)
  1. HYDROCHLOROTHIAZIDE. [Concomitant]
     Active Substance: HYDROCHLOROTHIAZIDE
     Dosage: NI
  2. CYCLOBENZAPRINE. [Concomitant]
     Active Substance: CYCLOBENZAPRINE
     Dosage: NI
  3. CIPROFLOXACIN. [Concomitant]
     Active Substance: CIPROFLOXACIN
     Dosage: NI
  4. OMEPRAZOLE. [Concomitant]
     Active Substance: OMEPRAZOLE
     Dosage: NI
  5. TRAMADOL. [Concomitant]
     Active Substance: TRAMADOL
     Dosage: NI
  6. MAGNESIUM [Concomitant]
     Active Substance: MAGNESIUM
     Dosage: NI
  7. RANITIDINE. [Concomitant]
     Active Substance: RANITIDINE
     Dosage: NI
  8. LONSURF [Suspect]
     Active Substance: TIPIRACIL HYDROCHLORIDE\TRIFLURIDINE
     Indication: COLON CANCER METASTATIC
     Dosage: DOSAGE NOT REPORTED
     Route: 048
     Dates: start: 2019, end: 201905
  9. GLYBURIDE. [Concomitant]
     Active Substance: GLYBURIDE
     Dosage: NI
  10. METFORMIN [Concomitant]
     Active Substance: METFORMIN HYDROCHLORIDE
     Dosage: NI
  11. TAMSULOSIN [Concomitant]
     Active Substance: TAMSULOSIN
     Dosage: NI
  12. POTASSIUM [Concomitant]
     Active Substance: POTASSIUM
     Dosage: NI
  13. ONDANSETRON [Concomitant]
     Active Substance: ONDANSETRON
     Dosage: NI

REACTIONS (7)
  - Disturbance in attention [Unknown]
  - Sepsis [Unknown]
  - Urinary tract infection [Unknown]
  - Pyrexia [Unknown]
  - Disorientation [Unknown]
  - Asthenia [Unknown]
  - Chills [Unknown]

NARRATIVE: CASE EVENT DATE: 201905
